FAERS Safety Report 7860509-5 (Version None)
Quarter: 2011Q4

REPORT INFORMATION
  Report Type: 
  Country: None (occurrence: None)
  Receive Date: 20111027
  Receipt Date: 20111021
  Transmission Date: 20120403
  Serious: No
  Sender: FDA-Public Use
  Company Number: US-PFIZER INC-2011256778

PATIENT
  Sex: Female
  Weight: 84.8 kg

DRUGS (13)
  1. JANUVIA [Concomitant]
     Dosage: 100 MG, UNK
     Route: 048
  2. XANAX [Concomitant]
     Dosage: 0.25 MG, UNK
     Route: 048
  3. LIPITOR [Concomitant]
     Dosage: 10 MG, UNK
     Route: 048
  4. ACETYLSALICYLIC ACID [Concomitant]
     Dosage: 324 MG
     Route: 048
  5. COREG [Concomitant]
     Dosage: 10 MG, UNK
     Route: 048
  6. GLUCOVANCE [Concomitant]
     Dosage: 1.25-250
     Route: 048
  7. MORPHINE SULFATE [Concomitant]
     Dosage: 15 MG, UNK
     Route: 048
  8. ZOMETA [Concomitant]
     Dosage: 4MG/5ML
  9. WELCHOL [Concomitant]
     Dosage: 625 MG
     Route: 048
  10. SUTENT [Suspect]
     Dosage: 50 MG, 1 CAPSULE DAILY FOR 4 WEEKS, THEN OFF 2 WEEKS
     Route: 048
  11. ALTACE [Concomitant]
     Dosage: 10 MG, UNK
     Route: 048
  12. LORTAB [Concomitant]
     Dosage: 7.5-500
     Route: 048
  13. PLAVIX [Concomitant]
     Dosage: 300 MG
     Route: 048

REACTIONS (3)
  - DIARRHOEA [None]
  - RASH [None]
  - BACK PAIN [None]
